FAERS Safety Report 6525882-9 (Version None)
Quarter: 2010Q1

REPORT INFORMATION
  Report Type: 
  Country: None (occurrence: None)
  Receive Date: 20100104
  Receipt Date: 20080403
  Transmission Date: 20100710
  Serious: Yes (Death, Other)
  Sender: FDA-Public Use
  Company Number: GB-CELGENEUS-167-20785-08040338

PATIENT

DRUGS (4)
  1. THALIDOMIDE [Suspect]
     Route: 048
  2. ETOPOSIDE [Suspect]
     Route: 051
  3. ETOPOSIDE [Suspect]
     Route: 048
  4. CARBOPLATIN [Suspect]
     Dosage: AUC 5
     Route: 051

REACTIONS (14)
  - ALOPECIA [None]
  - ANAEMIA [None]
  - DEATH [None]
  - DECREASED APPETITE [None]
  - DISEASE PROGRESSION [None]
  - DIVERTICULAR PERFORATION [None]
  - LUNG NEOPLASM MALIGNANT [None]
  - NAUSEA [None]
  - NEUROPATHY PERIPHERAL [None]
  - NEUTROPENIA [None]
  - RASH PRURITIC [None]
  - SOMNOLENCE [None]
  - THROMBOCYTOPENIA [None]
  - WHITE BLOOD CELL COUNT DECREASED [None]
